FAERS Safety Report 24409019 (Version 2)
Quarter: 2025Q1

REPORT INFORMATION
  Report Type: Spontaneous
  Country: US (occurrence: US)
  Receive Date: 20241008
  Receipt Date: 20250204
  Transmission Date: 20250409
  Serious: No
  Sender: SANDOZ
  Company Number: US-SANDOZ-SDZ2024US084344

PATIENT

DRUGS (1)
  1. CIMERLI [Suspect]
     Active Substance: RANIBIZUMAB-EQRN
     Indication: Product used for unknown indication
     Dosage: 00.05 MG/KG ONCE A MONTH (VIAL)
     Route: 050
     Dates: start: 20240920

REACTIONS (2)
  - Wrong technique in product usage process [Unknown]
  - Product contamination [Unknown]

NARRATIVE: CASE EVENT DATE: 20240920
